FAERS Safety Report 5290007-7 (Version None)
Quarter: 2007Q1

REPORT INFORMATION
  Report Type: 
  Country: None (occurrence: None)
  Receive Date: 20070116
  Receipt Date: 20051206
  Transmission Date: 20070707
  Serious: Yes (Other)
  Sender: FDA-Public Use
  Company Number: HQWYE369422JUL04

PATIENT
  Age: 54 Year
  Sex: Female

DRUGS (10)
  1. PREMPRO [Suspect]
     Indication: HORMONE REPLACEMENT THERAPY
  2. ACTIVELLA [Suspect]
  3. CLIMARA [Suspect]
  4. CYCRIN [Suspect]
  5. ESTRACE [Suspect]
  6. ESTROGENIC SUBSTANCE [Suspect]
  7. MEDROXYPROGESTERONE ACETATE [Suspect]
  8. PREMARIN [Suspect]
  9. PREMARIN [Suspect]
  10. PROVERA [Suspect]

REACTIONS (1)
  - BREAST CANCER [None]
